FAERS Safety Report 11738059 (Version 1)
Quarter: 2015Q4

REPORT INFORMATION
  Report Type: Spontaneous
  Country: US (occurrence: US)
  Receive Date: 20151113
  Receipt Date: 20151113
  Transmission Date: 20160304
  Serious: Yes (Hospitalization, Other)
  Sender: FDA-Public Use
  Company Number: US-B.I. PHARMACEUTICALS,INC./RIDGEFIELD-2015-BI-62614BP

PATIENT
  Age: 81 Year
  Sex: Male

DRUGS (2)
  1. DULCOGAS [Suspect]
     Active Substance: DIMETHICONE
     Indication: FLATULENCE
     Dosage: ONE TABLET AFTER USING ONE TABLET AS NEEDED
     Route: 048
     Dates: start: 2015
  2. DULCOLAX (BISACODYL) [Suspect]
     Active Substance: BISACODYL
     Indication: CONSTIPATION
     Dosage: ONE TABLET A FEW TIMES A YEAR
     Route: 048
     Dates: start: 2012

REACTIONS (4)
  - Gastrointestinal motility disorder [Not Recovered/Not Resolved]
  - Spinal cord injury lumbar [Recovered/Resolved]
  - Fall [Recovered/Resolved]
  - Spinal cord injury lumbar [Recovered/Resolved]

NARRATIVE: CASE EVENT DATE: 2015
